FAERS Safety Report 16499240 (Version 6)
Quarter: 2019Q3

REPORT INFORMATION
  Report Type: Spontaneous
  Country: US (occurrence: US)
  Receive Date: 20190701
  Receipt Date: 20190924
  Transmission Date: 20191004
  Serious: Yes (Hospitalization, Other)
  Sender: FDA-Public Use
  Company Number: US-AEGERION PHARMACEUTICAL, INC-AEGR004352

PATIENT
  Sex: Female
  Weight: 101.13 kg

DRUGS (33)
  1. TOUJEO [Concomitant]
     Active Substance: INSULIN GLARGINE
     Indication: INSULIN RESISTANCE
     Dosage: 300 ML, UNK
     Dates: start: 201810
  2. NIASPAN [Concomitant]
     Active Substance: NIACIN
     Indication: BLOOD TRIGLYCERIDES INCREASED
     Dosage: 500 MG, UNK
     Dates: start: 20190315
  3. OXYCODONE [Concomitant]
     Active Substance: OXYCODONE
     Indication: NEURALGIA
  4. METRELEPTIN [Suspect]
     Active Substance: METRELEPTIN
     Indication: CONGENITAL GENERALISED LIPODYSTROPHY
     Dosage: 5 MG, QD
     Route: 058
     Dates: start: 201903
  5. HUMALOG [Concomitant]
     Active Substance: INSULIN LISPRO
     Indication: INSULIN RESISTANCE
  6. INSULIN [Concomitant]
     Active Substance: INSULIN NOS
     Indication: PRODUCT USED FOR UNKNOWN INDICATION
     Dosage: 80 MG, QD (BALLPARK)
  7. METRELEPTIN [Suspect]
     Active Substance: METRELEPTIN
     Indication: CARPUS CURVUS
     Dosage: 10 MG, QD
     Route: 058
     Dates: start: 201906
  8. LOVAZA [Concomitant]
     Active Substance: OMEGA-3-ACID ETHYL ESTERS
     Indication: BLOOD TRIGLYCERIDES INCREASED
     Dosage: 1 G, BID
     Route: 048
     Dates: start: 20190225
  9. FENOFIBRATE. [Concomitant]
     Active Substance: FENOFIBRATE
     Indication: PRODUCT USED FOR UNKNOWN INDICATION
     Dosage: 160 MG, UNK
  10. MAGNESIUM [Concomitant]
     Active Substance: MAGNESIUM
     Indication: BLOOD MAGNESIUM DECREASED
     Dosage: 400 MG, QD
     Route: 048
     Dates: start: 201905
  11. HEPARIN [Concomitant]
     Active Substance: HEPARIN SODIUM
     Indication: PRODUCT USED FOR UNKNOWN INDICATION
     Dosage: 5 UNK, QD
  12. ONDANSETRON AN [Concomitant]
     Active Substance: ONDANSETRON HYDROCHLORIDE
     Indication: NAUSEA
     Dosage: 4 MG, UNK
     Route: 048
     Dates: start: 20181213
  13. NORMAL SALINE [Concomitant]
     Active Substance: SODIUM CHLORIDE
     Indication: LACTIC ACIDOSIS
     Dosage: 50 ML/HR
     Route: 042
     Dates: start: 201902
  14. VITAMIN D                          /00107901/ [Concomitant]
     Active Substance: ERGOCALCIFEROL
     Indication: PRODUCT USED FOR UNKNOWN INDICATION
     Dosage: 50000 UNITS, M, W, F
     Route: 048
     Dates: start: 20190603
  15. GABAPENTIN. [Concomitant]
     Active Substance: GABAPENTIN
     Indication: NEUROPATHY PERIPHERAL
  16. OXYCODONE [Concomitant]
     Active Substance: OXYCODONE
     Indication: PAIN
     Dosage: 5 MG, PRN
     Route: 048
     Dates: start: 201904
  17. METRELEPTIN [Suspect]
     Active Substance: METRELEPTIN
     Indication: INSULIN RESISTANCE
     Dosage: 5 MG, QD
     Route: 058
     Dates: start: 20190406
  18. BACTERIOSTATIC WATER [Concomitant]
     Active Substance: WATER
     Indication: PRODUCT USED FOR UNKNOWN INDICATION
  19. THIAMINE HCL [Concomitant]
     Active Substance: THIAMINE HYDROCHLORIDE
     Indication: PRODUCT USED FOR UNKNOWN INDICATION
     Dosage: 100 MG, UNK
  20. ZOFRAN [Concomitant]
     Active Substance: ONDANSETRON HYDROCHLORIDE
     Indication: NAUSEA
     Dosage: 4 MG, PRN
     Route: 048
     Dates: start: 20181213
  21. DRISDOL [Concomitant]
     Active Substance: ERGOCALCIFEROL
     Indication: PRODUCT USED FOR UNKNOWN INDICATION
     Dosage: 1 CAPSULE M-W-F
     Dates: start: 20190306
  22. MORPHINE [Concomitant]
     Active Substance: MORPHINE
     Indication: PAIN
     Dosage: 5 MG, PRN
     Route: 048
     Dates: start: 20190225
  23. MULTIVITAMINS                      /07504101/ [Concomitant]
     Active Substance: VITAMINS
     Indication: PRODUCT USED FOR UNKNOWN INDICATION
  24. HUMALOG [Concomitant]
     Active Substance: INSULIN LISPRO
     Indication: BLOOD TRIGLYCERIDES INCREASED
     Dosage: U-100, 12-18 HOUR OF AC
     Route: 058
     Dates: start: 20181015
  25. TORSEMIDE. [Concomitant]
     Active Substance: TORSEMIDE
     Indication: PRODUCT USED FOR UNKNOWN INDICATION
  26. SODIUM BICARBONATE. [Concomitant]
     Active Substance: SODIUM BICARBONATE
     Indication: LACTIC ACIDOSIS
     Dosage: 650 MG, Q4 HOURS
     Route: 048
     Dates: start: 20190205
  27. NIACIN. [Concomitant]
     Active Substance: NIACIN
     Indication: PRODUCT USED FOR UNKNOWN INDICATION
  28. EZETIMIBE. [Concomitant]
     Active Substance: EZETIMIBE
     Indication: BLOOD TRIGLYCERIDES INCREASED
     Dosage: 10 MG, QD
     Route: 048
     Dates: start: 20190214
  29. TOUJEO [Concomitant]
     Active Substance: INSULIN GLARGINE
     Indication: BLOOD TRIGLYCERIDES INCREASED
  30. BIOTIN [Concomitant]
     Active Substance: BIOTIN
     Indication: PRODUCT USED FOR UNKNOWN INDICATION
     Dosage: 5000 MCG, QD
     Route: 048
  31. GABAPENTIN. [Concomitant]
     Active Substance: GABAPENTIN
     Indication: PAIN
     Dosage: 100 MG, PRN
     Dates: start: 20170618
  32. NIASPAN [Concomitant]
     Active Substance: NIACIN
     Indication: BLOOD LACTIC ACID
  33. DEMADEX [Concomitant]
     Active Substance: TORSEMIDE
     Indication: DYSPNOEA
     Dosage: 20 MG, PRN
     Route: 048
     Dates: start: 20190314

REACTIONS (10)
  - Diabetes mellitus [Unknown]
  - Condition aggravated [Unknown]
  - Drug specific antibody [Unknown]
  - Insulin resistance [Unknown]
  - Nasopharyngitis [Unknown]
  - Glaucoma [Unknown]
  - Weight increased [Unknown]
  - Hypertriglyceridaemia [Unknown]
  - Hepatic steatosis [Unknown]
  - Drug ineffective [Unknown]

NARRATIVE: CASE EVENT DATE: 2019
